FAERS Safety Report 7826928-8 (Version None)
Quarter: 2011Q4

REPORT INFORMATION
  Report Type: 
  Country: None (occurrence: None)
  Receive Date: 20111020
  Receipt Date: 20111006
  Transmission Date: 20120403
  Serious: Yes (Hospitalization)
  Sender: FDA-Public Use
  Company Number: IL-UCBSA-011430

PATIENT
  Age: 72 Year
  Sex: Male
  Weight: 84 kg

DRUGS (17)
  1. CERTOLIZUMAB PEGOL [Suspect]
     Dosage: NBR OF DOSES RECEIVED: 34
     Route: 058
     Dates: start: 20060828, end: 20071128
  2. MICROPIRIN [Concomitant]
     Route: 048
  3. RAMIPRIL [Concomitant]
     Route: 048
  4. RECITAL [Concomitant]
     Route: 048
  5. FOLIC ACID [Concomitant]
     Route: 048
  6. CADEX [Concomitant]
     Route: 048
  7. PREDNISONE [Concomitant]
     Route: 048
  8. AMLOW [Concomitant]
     Route: 048
  9. AVILAC [Concomitant]
     Dosage: 30 CC X SOS
     Route: 048
  10. CERTOLIZUMAB PEGOL [Suspect]
     Indication: RHEUMATOID ARTHRITIS
     Dosage: NBR OF DOSES RECEIVED: 75
     Route: 058
     Dates: start: 20071217, end: 20100428
  11. CERTOLIZUMAB PEGOL [Suspect]
     Dosage: CDP870-027
     Route: 058
     Dates: start: 20050824, end: 20060809
  12. BONDORMIN [Concomitant]
     Dosage: AT BEDTIME
     Route: 048
  13. CARDILOC [Concomitant]
     Route: 048
  14. LANTON [Concomitant]
     Route: 048
  15. LIPITOR [Concomitant]
     Route: 048
  16. CALCIUM PLUS D [Concomitant]
     Dosage: 1 TAB 2 TIMES DAILY
     Route: 048
  17. SLOW -FE [Concomitant]
     Route: 048

REACTIONS (1)
  - POSTOPERATIVE WOUND INFECTION [None]
